FAERS Safety Report 16869540 (Version 4)
Quarter: 2019Q4

REPORT INFORMATION
  Report Type: Spontaneous
  Country: AU (occurrence: AU)
  Receive Date: 20190930
  Receipt Date: 20191120
  Transmission Date: 20200122
  Serious: Yes (Other)
  Sender: FDA-Public Use
  Company Number: AU-MYLANLABS-2019M1090024

PATIENT
  Age: 54 Year
  Sex: Male

DRUGS (12)
  1. ATORVASTATIN [Concomitant]
     Active Substance: ATORVASTATIN
     Dosage: UNK, AM
     Route: 048
  2. CLOZARIL [Suspect]
     Active Substance: CLOZAPINE
     Dosage: 25 MILLIGRAM, MANE
     Route: 048
     Dates: start: 20151130, end: 20151217
  3. OLANZAPINE. [Concomitant]
     Active Substance: OLANZAPINE
     Dosage: UNK, NOCTE
     Route: 048
  4. LURASIDONE [Concomitant]
     Active Substance: LURASIDONE
     Indication: PSYCHOTIC DISORDER
     Dosage: UNK
     Dates: end: 201909
  5. ATENOLOL. [Concomitant]
     Active Substance: ATENOLOL
     Dosage: UNK, AM
     Route: 048
  6. PANTOPRAZOLE [Concomitant]
     Active Substance: PANTOPRAZOLE
     Dosage: UNK, AM
     Route: 048
  7. CLOZARIL [Suspect]
     Active Substance: CLOZAPINE
     Dosage: 375.00 MILLIGRAM
     Route: 048
     Dates: start: 2019
  8. AMLODIPINE [Concomitant]
     Active Substance: AMLODIPINE BESYLATE
     Dosage: UNK, AM
     Route: 048
  9. CLOZARIL [Suspect]
     Active Substance: CLOZAPINE
     Indication: SCHIZOPHRENIA
     Dosage: 150 MILLIGRAM, NOCTE
     Route: 048
     Dates: start: 20151130, end: 20151217
  10. CLOZARIL [Suspect]
     Active Substance: CLOZAPINE
     Dosage: UNK
     Route: 048
     Dates: start: 20191004
  11. ARIPIPRAZOLE. [Concomitant]
     Active Substance: ARIPIPRAZOLE
     Dosage: UNK
     Route: 030
     Dates: end: 20190910
  12. METFORMIN [Concomitant]
     Active Substance: METFORMIN HYDROCHLORIDE
     Dosage: UNK, AM
     Route: 048

REACTIONS (27)
  - Protein total increased [Not Recovered/Not Resolved]
  - Blood phosphorus decreased [Recovered/Resolved]
  - Neutrophil count increased [Unknown]
  - Myocarditis [Unknown]
  - Blood alkaline phosphatase increased [Not Recovered/Not Resolved]
  - Haemoglobin decreased [Recovered/Resolved]
  - Mean cell volume decreased [Recovered/Resolved]
  - Gamma-glutamyltransferase increased [Unknown]
  - Blood urea decreased [Unknown]
  - Blood chloride decreased [Unknown]
  - Blood triglycerides increased [Not Recovered/Not Resolved]
  - Blood creatinine increased [Recovering/Resolving]
  - Antipsychotic drug level increased [Unknown]
  - Blood magnesium decreased [Unknown]
  - Blood lactate dehydrogenase increased [Recovered/Resolved]
  - Blood glucose increased [Recovering/Resolving]
  - Aspartate aminotransferase increased [Recovered/Resolved]
  - Haematocrit decreased [Recovered/Resolved]
  - Globulins increased [Not Recovered/Not Resolved]
  - Blood test abnormal [Not Recovered/Not Resolved]
  - Blood uric acid increased [Not Recovered/Not Resolved]
  - Pyrexia [Unknown]
  - Blood sodium decreased [Not Recovered/Not Resolved]
  - Dizziness [Unknown]
  - Glomerular filtration rate decreased [Recovered/Resolved]
  - Mean cell haemoglobin decreased [Not Recovered/Not Resolved]
  - Eosinophil count increased [Recovered/Resolved]

NARRATIVE: CASE EVENT DATE: 2015
